FAERS Safety Report 8102586-2 (Version None)
Quarter: 2012Q1

REPORT INFORMATION
  Report Type: 
  Country: None (occurrence: None)
  Receive Date: 20120201
  Receipt Date: 20120126
  Transmission Date: 20120608
  Serious: Yes (Disabling)
  Sender: FDA-Public Use
  Company Number: US-SANOFI-AVENTIS-2012SA005823

PATIENT
  Sex: Male

DRUGS (4)
  1. SOLOSTAR [Suspect]
     Indication: DIABETES MELLITUS
  2. LANTUS [Suspect]
     Indication: DIABETES MELLITUS
     Dosage: DOSE:45 UNIT(S)
     Route: 058
  3. HUMALOG [Concomitant]
     Dosage: ON A SLIDING SCALE
  4. ALL OTHER THERAPEUTIC PRODUCTS [Concomitant]

REACTIONS (3)
  - PARALYSIS [None]
  - VIRAL INFECTION [None]
  - BLOOD GLUCOSE INCREASED [None]
